FAERS Safety Report 8303394-X (Version None)
Quarter: 2012Q2

REPORT INFORMATION
  Report Type: 
  Country: None (occurrence: None)
  Receive Date: 20120423
  Receipt Date: 20090609
  Transmission Date: 20120825
  Serious: No
  Sender: FDA-Public Use
  Company Number: 2009BI017703

PATIENT
  Age: 52 Year
  Sex: Female

DRUGS (2)
  1. TYSABRI [Suspect]
     Indication: MULTIPLE SCLEROSIS
     Route: 042
     Dates: start: 20061220, end: 20070820
  2. TYSABRI [Suspect]
     Route: 042
     Dates: start: 20090512

REACTIONS (5)
  - MULTIPLE SCLEROSIS [None]
  - BALANCE DISORDER [None]
  - MUSCULAR WEAKNESS [None]
  - ASTHENIA [None]
  - GAIT DISTURBANCE [None]
